FAERS Safety Report 9988853 (Version 1)
Quarter: 2014Q1

REPORT INFORMATION
  Report Type: Spontaneous
  Country: US (occurrence: US)
  Receive Date: 20140310
  Receipt Date: 20140310
  Transmission Date: 20141002
  Serious: No
  Sender: FDA-Public Use
  Company Number: US-BAYER-2014-031528

PATIENT
  Age: 65 Year
  Sex: Female

DRUGS (10)
  1. ALEVE CAPLET [Suspect]
     Indication: PRODUCT USED FOR UNKNOWN INDICATION
     Dosage: 220 MG, QOD
  2. HUMIRA [Concomitant]
     Indication: COLITIS ULCERATIVE
     Dosage: 40 MG, UNK
     Dates: start: 20131126
  3. IMURAN [Concomitant]
     Indication: COLITIS ULCERATIVE
     Dosage: 100 MG, DAILY
  4. CHANTIX [Concomitant]
  5. MESALAMINE [Concomitant]
  6. VENTOLIN [Concomitant]
  7. VITAMIN C [Concomitant]
  8. IRON [Concomitant]
  9. CALCIUM [Concomitant]
  10. MULTIVITAMIN [Concomitant]

REACTIONS (4)
  - Asthenia [None]
  - Drug ineffective [None]
  - Arthralgia [None]
  - Pain in extremity [None]
